FAERS Safety Report 11137252 (Version 1)
Quarter: 2015Q2

REPORT INFORMATION
  Report Type: Spontaneous
  Country: US (occurrence: US)
  Receive Date: 20150526
  Receipt Date: 20150526
  Transmission Date: 20150821
  Serious: No
  Sender: FDA-Public Use
  Company Number: US-GLAXOSMITHKLINE-US2015069888

PATIENT
  Sex: Female

DRUGS (6)
  1. NASAL SPRAY [Concomitant]
     Active Substance: UNSPECIFIED INGREDIENT
  2. ADVAIR DISKUS [Suspect]
     Active Substance: FLUTICASONE PROPIONATE\SALMETEROL XINAFOATE
     Indication: ASTHMA
     Dosage: 2 PUFF(S), BID
     Route: 055
     Dates: start: 2012, end: 201505
  3. PROAIR HFA [Concomitant]
     Active Substance: ALBUTEROL SULFATE
  4. BENZONATATE. [Concomitant]
     Active Substance: BENZONATATE
  5. ADVAIR DISKUS [Suspect]
     Active Substance: FLUTICASONE PROPIONATE\SALMETEROL XINAFOATE
     Indication: ASTHMA
     Dosage: 2 PUFF(S), BID
     Route: 055
     Dates: start: 201505
  6. SIMPLY SALINE [Concomitant]

REACTIONS (5)
  - Muscle spasms [Recovering/Resolving]
  - Overdose [Unknown]
  - Multiple allergies [Not Recovered/Not Resolved]
  - Rhinitis [Recovering/Resolving]
  - Cough [Not Recovered/Not Resolved]

NARRATIVE: CASE EVENT DATE: 2012
